FAERS Safety Report 4551943-X (Version None)
Quarter: 2005Q1

REPORT INFORMATION
  Report Type: 
  Country: None (occurrence: None)
  Receive Date: 20050113
  Receipt Date: 20050110
  Transmission Date: 20050727
  Serious: Yes (Other)
  Sender: FDA-Public Use
  Company Number: 003888

PATIENT
  Sex: Female

DRUGS (3)
  1. MEDROXYPROGESTERONE ACETATE [Suspect]
     Dates: start: 19940101, end: 20020101
  2. ESTRADIOL [Suspect]
     Dates: start: 19940101, end: 20020101
  3. PREMARIN [Suspect]
     Dates: start: 19940101, end: 20020101

REACTIONS (1)
  - BREAST CANCER FEMALE [None]
